FAERS Safety Report 10818561 (Version 2)
Quarter: 2015Q1

REPORT INFORMATION
  Report Type: Spontaneous
  Country: US (occurrence: US)
  Receive Date: 20150218
  Receipt Date: 20150323
  Transmission Date: 20150721
  Serious: No
  Sender: FDA-Public Use
  Company Number: US-009507513-1502USA006399

PATIENT
  Sex: Male
  Weight: 77.98 kg

DRUGS (1)
  1. MIRALAX [Suspect]
     Active Substance: POLYETHYLENE GLYCOL 3350
     Indication: OBESITY SURGERY
     Dosage: 17 G, BID
     Route: 048

REACTIONS (5)
  - Inappropriate schedule of drug administration [Unknown]
  - Off label use [Unknown]
  - Drug prescribing error [Unknown]
  - Overdose [Unknown]
  - Product physical consistency issue [Unknown]
